FAERS Safety Report 21464710 (Version 1)
Quarter: 2022Q4

REPORT INFORMATION
  Report Type: Spontaneous
  Country: US (occurrence: None)
  Receive Date: 20221014
  Receipt Date: 20221014
  Transmission Date: 20230113
  Serious: Yes (Other)
  Sender: FDA-Public Use
  Company Number: None

PATIENT
  Age: 34 Year
  Sex: Male
  Weight: 74.25 kg

DRUGS (4)
  1. PAXLOVID [Suspect]
     Active Substance: NIRMATRELVIR\RITONAVIR
     Indication: COVID-19
     Dosage: FREQUENCY : TWICE A DAY;?
     Route: 048
     Dates: start: 20221012, end: 20221014
  2. fluxetine [Concomitant]
     Dates: start: 20211001
  3. nutrelite [Concomitant]
     Dates: start: 20211001
  4. hydrocortisone shot x5 [Concomitant]
     Dates: start: 20220914

REACTIONS (3)
  - Dysgeusia [None]
  - Abnormal dreams [None]
  - Dysphagia [None]

NARRATIVE: CASE EVENT DATE: 20221012
